FAERS Safety Report 12801049 (Version 1)
Quarter: 2016Q4

REPORT INFORMATION
  Report Type: Report from Study
  Country: US (occurrence: US)
  Receive Date: 20161003
  Receipt Date: 20161003
  Transmission Date: 20170207
  Serious: Yes (Other)
  Sender: FDA-Public Use
  Company Number: US-ACTELION-A-NJ2016-142804

PATIENT
  Age: 46 Year
  Sex: Female

DRUGS (9)
  1. OPSUMIT [Suspect]
     Active Substance: MACITENTAN
     Indication: PULMONARY HYPERTENSION
     Dosage: 10 MG, UNK
     Route: 048
     Dates: start: 20160105
  2. LISINOPRIL. [Concomitant]
     Active Substance: LISINOPRIL
  3. LOPRESSOR [Concomitant]
     Active Substance: METOPROLOL TARTRATE
  4. FUROSEMIDE. [Concomitant]
     Active Substance: FUROSEMIDE
  5. PAXIL [Concomitant]
     Active Substance: PAROXETINE HYDROCHLORIDE
  6. KLONOPIN [Concomitant]
     Active Substance: CLONAZEPAM
  7. SILDENAFIL. [Concomitant]
     Active Substance: SILDENAFIL
  8. ASPIRIN. [Concomitant]
     Active Substance: ASPIRIN
  9. XANAX [Concomitant]
     Active Substance: ALPRAZOLAM

REACTIONS (2)
  - Cholecystectomy [Unknown]
  - Diarrhoea [Unknown]
